FAERS Safety Report 10012117 (Version 1)
Quarter: 2014Q1

REPORT INFORMATION
  Report Type: Spontaneous
  Country: US (occurrence: None)
  Receive Date: 20140313
  Receipt Date: 20140313
  Transmission Date: 20141002
  Serious: Yes (Death, Life-Threatening, Hospitalization, Disabling, Other)
  Sender: FDA-Public Use
  Company Number: None

PATIENT
  Age: 86 Year
  Sex: Female
  Weight: 77.11 kg

DRUGS (1)
  1. RECLAST [Suspect]
     Indication: OSTEOPOROSIS PROPHYLAXIS
     Dosage: YEARLY INJECTION

REACTIONS (1)
  - Bone marrow failure [None]
